FAERS Safety Report 5649024-7 (Version None)
Quarter: 2008Q1

REPORT INFORMATION
  Report Type: 
  Country: None (occurrence: None)
  Receive Date: 20080303
  Receipt Date: 20080303
  Transmission Date: 20080703
  Serious: Yes (Hospitalization, Disabling, Other)
  Sender: FDA-Public Use
  Company Number: None

PATIENT
  Sex: Male
  Weight: 68.0396 kg

DRUGS (1)
  1. MELOXICAM [Suspect]
     Indication: SCIATICA
     Dosage: 1 TABLET ONE PER DAY PO  (DURATION: 5 DOSES)
     Route: 048
     Dates: start: 20080211, end: 20080217

REACTIONS (2)
  - CORONARY ARTERY OCCLUSION [None]
  - MYOCARDIAL INFARCTION [None]
